FAERS Safety Report 6425914-2 (Version None)
Quarter: 2009Q4

REPORT INFORMATION
  Report Type: 
  Country: None (occurrence: None)
  Receive Date: 20091103
  Receipt Date: 20091103
  Transmission Date: 20100525
  Serious: No
  Sender: FDA-Public Use
  Company Number: None

PATIENT
  Age: 50 Year
  Sex: Male
  Weight: 97 kg

DRUGS (1)
  1. GEMFIBROZIL [Suspect]
     Dosage: 1 TAB BID PO
     Route: 048
     Dates: start: 20080909, end: 20090714

REACTIONS (3)
  - ARTHRALGIA [None]
  - MYALGIA [None]
  - SWELLING [None]
